FAERS Safety Report 5096432-1 (Version None)
Quarter: 2006Q3

REPORT INFORMATION
  Report Type: 
  Country: None (occurrence: None)
  Receive Date: 20060905
  Receipt Date: 20060823
  Transmission Date: 20061208
  Serious: Yes (Death)
  Sender: FDA-Public Use
  Company Number: JP-BRISTOL-MYERS SQUIBB COMPANY-13494000

PATIENT
  Age: 32 Year
  Sex: Female

DRUGS (11)
  1. ABILIFY [Suspect]
     Indication: SCHIZOPHRENIA
     Route: 048
     Dates: start: 20060622, end: 20060817
  2. FLUPHENAZINE DECANOATE [Suspect]
     Route: 030
     Dates: end: 20060803
  3. RISPERIDONE [Suspect]
     Route: 048
     Dates: end: 20060817
  4. ZOTEPINE [Suspect]
     Route: 048
     Dates: end: 20060817
  5. CARBAMAZEPINE [Suspect]
     Route: 048
     Dates: end: 20060817
  6. LORAZEPAM [Suspect]
     Route: 048
     Dates: end: 20060817
  7. BIPERIDEN HYDROCHLORIDE TAB [Suspect]
     Route: 048
     Dates: end: 20060817
  8. BIPERIDEN HYDROCHLORIDE TAB [Suspect]
     Route: 048
     Dates: end: 20060817
  9. LEVOMEPROMAZINE MALEATE [Suspect]
     Route: 048
     Dates: end: 20060817
  10. NITRAZEPAM [Suspect]
     Route: 048
     Dates: end: 20060817
  11. ELECTROCONVULSIVE THERAPY [Concomitant]

REACTIONS (1)
  - CARDIAC FAILURE [None]
